FAERS Safety Report 6672970-2 (Version None)
Quarter: 2010Q2

REPORT INFORMATION
  Report Type: 
  Country: None (occurrence: None)
  Receive Date: 20100408
  Receipt Date: 20100405
  Transmission Date: 20101027
  Serious: Yes (Hospitalization, Other)
  Sender: FDA-Public Use
  Company Number: A0853796A

PATIENT
  Age: 49 Year
  Sex: Male
  Weight: 83.5 kg

DRUGS (13)
  1. MELPHALAN HYDROCHLORIDE [Suspect]
     Indication: AMYLOIDOSIS
     Dosage: 100MGM2 CYCLIC
     Route: 042
     Dates: start: 20100223, end: 20100224
  2. BORTEZOMIB [Suspect]
     Indication: AMYLOIDOSIS
     Route: 042
     Dates: start: 20100105, end: 20100301
  3. DEXAMETHASONE [Suspect]
     Indication: AMYLOIDOSIS
     Dosage: 20MG CYCLIC
     Route: 040
     Dates: start: 20100105, end: 20100205
  4. ACYCLOVIR [Concomitant]
     Dates: start: 20100226
  5. LEVOFLOXACIN [Concomitant]
     Dates: start: 20100226
  6. DIFLUCAN [Concomitant]
     Dates: start: 20100226
  7. ATIVAN [Concomitant]
     Dates: start: 20100226
  8. DECADRON [Concomitant]
  9. COMPAZINE [Concomitant]
     Dates: start: 20100226
  10. KYTRIL [Concomitant]
     Dates: start: 20100226
  11. PRILOSEC [Concomitant]
     Dates: start: 20100226
  12. SODIUM BICARBONATE [Concomitant]
     Dates: start: 20100226
  13. NEUPOGEN [Concomitant]
     Dates: start: 20100226

REACTIONS (9)
  - ABDOMINAL PAIN LOWER [None]
  - ASTHENIA [None]
  - BONE PAIN [None]
  - DERMATITIS CONTACT [None]
  - DRY THROAT [None]
  - EPISTAXIS [None]
  - FATIGUE [None]
  - FEBRILE NEUTROPENIA [None]
  - OEDEMA PERIPHERAL [None]
